FAERS Safety Report 23821270 (Version 1)
Quarter: 2024Q2

REPORT INFORMATION
  Report Type: Spontaneous
  Country: RO (occurrence: RO)
  Receive Date: 20240506
  Receipt Date: 20240506
  Transmission Date: 20240716
  Serious: Yes (Other)
  Sender: FDA-Public Use
  Company Number: RO-ROCHE-3535117

PATIENT
  Age: 43 Year
  Sex: Female

DRUGS (5)
  1. CARBOPLATIN [Suspect]
     Active Substance: CARBOPLATIN
     Indication: Breast neoplasm
     Route: 065
  2. DOCETAXEL [Suspect]
     Active Substance: DOCETAXEL\DOCETAXEL ANHYDROUS
     Indication: Breast neoplasm
     Route: 065
  3. TRASTUZUMAB [Suspect]
     Active Substance: TRASTUZUMAB
     Indication: Breast neoplasm
     Dosage: TRASTUZUMAB 8 MG/KG BW AND PERTUZUMAB 840 MG LOADING DOSES, THEN TRASTUZUMAB 6 MG/KG BW AND PERTUZUM
     Route: 042
     Dates: start: 202206, end: 202210
  4. PERTUZUMAB [Suspect]
     Active Substance: PERTUZUMAB
     Indication: Breast neoplasm
     Dosage: TRASTUZUMAB 8 MG/KG BW AND PERTUZUMAB 840 MG LOADING DOSES, THEN TRASTUZUMAB 6 MG/KG BW AND PERTUZUM
     Route: 065
     Dates: start: 202206, end: 202210
  5. LETROZOLE [Suspect]
     Active Substance: LETROZOLE
     Indication: Breast neoplasm
     Route: 065

REACTIONS (4)
  - Pulmonary fibrosis [Unknown]
  - Tumour invasion [Unknown]
  - Pulmonary mass [Unknown]
  - Nodule [Unknown]
